FAERS Safety Report 4445297-7 (Version None)
Quarter: 2004Q3

REPORT INFORMATION
  Report Type: 
  Country: None (occurrence: None)
  Receive Date: 20040730
  Receipt Date: 20040706
  Transmission Date: 20050211
  Serious: No
  Sender: FDA-Public Use
  Company Number: PHEH2004US07202

PATIENT
  Age: 10 Year
  Sex: Male

DRUGS (1)
  1. GLEEVEC [Suspect]
     Indication: ACUTE LYMPHOCYTIC LEUKAEMIA
     Dosage: QHS,ORAL
     Route: 048
     Dates: start: 20030301

REACTIONS (1)
  - CHROMOSOME ANALYSIS ABNORMAL [None]
